FAERS Safety Report 9486539 (Version 1)
Quarter: 2013Q3

REPORT INFORMATION
  Report Type: Spontaneous
  Country: US (occurrence: None)
  Receive Date: 20130827
  Receipt Date: 20130827
  Transmission Date: 20140515
  Serious: Yes (Disabling)
  Sender: FDA-Public Use
  Company Number: None

PATIENT
  Age: 41 Year
  Sex: Male
  Weight: 90.72 kg

DRUGS (1)
  1. LEVAQUIN [Suspect]
     Indication: EPIDIDYMITIS
     Dosage: 10 PILLS ONCE DAILY TAKEN BY MOUTH
     Route: 048
     Dates: start: 20050815, end: 20050825

REACTIONS (2)
  - Neuropathy peripheral [None]
  - Nervous system disorder [None]
